FAERS Safety Report 9276009 (Version 1)
Quarter: 2013Q2

REPORT INFORMATION
  Report Type: Spontaneous
  Country: US (occurrence: US)
  Receive Date: 20130507
  Receipt Date: 20130507
  Transmission Date: 20140414
  Serious: Yes (Death)
  Sender: FDA-Public Use
  Company Number: US-INCYTE CORPORATION-2013IN000908

PATIENT
  Sex: Male

DRUGS (7)
  1. JAKAFI [Suspect]
     Dosage: 25 MG, BID
     Route: 048
  2. ALLOPURINOL [Concomitant]
  3. ATENOLOL [Concomitant]
  4. AMLODIPINE [Concomitant]
  5. PREDNISONE [Concomitant]
  6. VITAMIN D [Concomitant]
  7. ASPIRIN [Concomitant]

REACTIONS (1)
  - Death [Fatal]
